FAERS Safety Report 8433583-5 (Version None)
Quarter: 2012Q2

REPORT INFORMATION
  Report Type: 
  Country: None (occurrence: None)
  Receive Date: 20120613
  Receipt Date: 20120329
  Transmission Date: 20120825
  Serious: Yes (Death, Life-Threatening, Hospitalization, Other)
  Sender: FDA-Public Use
  Company Number: US-UCBSA-045003

PATIENT
  Age: 70 Year
  Sex: Female
  Weight: 92.7 kg

DRUGS (17)
  1. ATENOLOL [Concomitant]
     Indication: HYPERTENSION
     Route: 048
     Dates: start: 19850101
  2. PRILOSEC [Concomitant]
     Indication: GASTROOESOPHAGEAL REFLUX DISEASE
     Dosage: 20MG DAILY
     Route: 048
  3. FLONASE [Concomitant]
     Indication: HYPERSENSITIVITY
     Route: 055
     Dates: start: 20000101
  4. XANAX [Concomitant]
     Indication: ABDOMINAL PAIN
     Dosage: 0.25 MG
     Route: 048
  5. PROAIR HFA [Concomitant]
     Dosage: 90 MCG, 2 PUFFS AS INSTRUCTED EVERY 6 HOURS. AS NECESSARY
     Route: 055
  6. CIMZIA [Suspect]
     Indication: PSORIATIC ARTHROPATHY
     Route: 058
     Dates: start: 20100701
  7. FOLIC ACID [Concomitant]
     Indication: MEDICAL DIET
     Route: 048
     Dates: start: 20090101
  8. ZOCOR [Concomitant]
     Indication: BLOOD CHOLESTEROL INCREASED
     Route: 048
     Dates: start: 20020101
  9. DYAZIDE [Concomitant]
     Indication: HYPERTENSION
     Dosage: DOSE: 37.5MG/25MG
     Route: 048
     Dates: start: 20070101
  10. FLEXERIL [Concomitant]
     Indication: MUSCLE SPASMS
     Dosage: 10 MG. 1 TABLET EVERY 8 HOURS
     Route: 048
  11. METHOTREXATE [Concomitant]
     Indication: PSORIATIC ARTHROPATHY
     Route: 048
     Dates: start: 20090101
  12. AMARYL [Concomitant]
     Indication: TYPE 2 DIABETES MELLITUS
     Route: 048
     Dates: start: 20070101
  13. XANAX [Concomitant]
     Route: 048
     Dates: start: 20111005
  14. PERCOCET [Concomitant]
     Indication: PAIN
     Dosage: 5-325 MG. 1-2 TABS EVERY 6 HOURS AS NEEDED.
     Route: 048
  15. TRIAMTERENE AND HYDROCHLOROTHIAZIDE [Concomitant]
     Dosage: 37.5-25 MG DAILY
     Route: 048
  16. PRILOSEC [Concomitant]
     Route: 048
     Dates: start: 20090101
  17. ADVAIR DISKUS 100/50 [Concomitant]
     Indication: ASTHMA
     Dosage: DOSE:1, 250-50 MCG/DOSE
     Route: 055
     Dates: start: 20000101

REACTIONS (2)
  - URINARY TRACT INFECTION [None]
  - LYMPHOMA [None]
